FAERS Safety Report 21491106 (Version 5)
Quarter: 2023Q1

REPORT INFORMATION
  Report Type: Report from Study
  Country: US (occurrence: US)
  Receive Date: 20221021
  Receipt Date: 20230317
  Transmission Date: 20230418
  Serious: Yes (Hospitalization, Other)
  Sender: FDA-Public Use
  Company Number: US-INSMED-2022-00719-USAA

PATIENT
  Sex: Female

DRUGS (8)
  1. ARIKAYCE [Suspect]
     Active Substance: AMIKACIN
     Indication: Mycobacterium avium complex infection
     Dosage: 590 MILLIGRAM, QD
     Route: 055
     Dates: start: 20220309, end: 2022
  2. ARIKAYCE [Suspect]
     Active Substance: AMIKACIN
     Dosage: 590 MILLIGRAM, TIW
     Route: 055
     Dates: start: 2022, end: 2022
  3. ARIKAYCE [Suspect]
     Active Substance: AMIKACIN
     Dosage: 590 MILLIGRAM, QD
     Route: 055
     Dates: start: 2022, end: 2022
  4. ARIKAYCE [Suspect]
     Active Substance: AMIKACIN
     Dosage: 590 MILLIGRAM, TIW, ON MONDAY, WEDNESDAY AND FRIDAY
     Route: 055
     Dates: start: 2022, end: 2022
  5. ARIKAYCE [Suspect]
     Active Substance: AMIKACIN
     Dosage: 590 MILLIGRAM, QOD
     Route: 055
     Dates: start: 2022
  6. ARIKAYCE [Suspect]
     Active Substance: AMIKACIN
     Dosage: 590 MILLIGRAM, QD
     Route: 055
     Dates: start: 2022, end: 2022
  7. ARIKAYCE [Suspect]
     Active Substance: AMIKACIN
     Dosage: 590 MILLIGRAM, QOD
     Route: 055
     Dates: start: 2022, end: 20230118
  8. ARIKAYCE [Suspect]
     Active Substance: AMIKACIN
     Dosage: 590 MILLIGRAM, QOD
     Route: 055
     Dates: start: 2023

REACTIONS (25)
  - Hospitalisation [Unknown]
  - Pneumonia [Unknown]
  - Chest pain [Unknown]
  - Vaginal infection [Unknown]
  - Blood test abnormal [Unknown]
  - Cervical radiculopathy [Unknown]
  - Protein total abnormal [Recovered/Resolved]
  - Anaemia [Recovered/Resolved]
  - Constipation [Recovered/Resolved]
  - Pain [Recovering/Resolving]
  - Chest discomfort [Unknown]
  - Weight decreased [Not Recovered/Not Resolved]
  - Aphonia [Unknown]
  - Pyrexia [Unknown]
  - Dysphonia [Unknown]
  - Fatigue [Not Recovered/Not Resolved]
  - Nausea [Not Recovered/Not Resolved]
  - Diarrhoea [Unknown]
  - Cough [Not Recovered/Not Resolved]
  - Malaise [Unknown]
  - Wheezing [Not Recovered/Not Resolved]
  - Haemoptysis [Unknown]
  - Dyspnoea [Unknown]
  - Off label use [Unknown]
  - Accidental underdose [Unknown]

NARRATIVE: CASE EVENT DATE: 20220101
